FAERS Safety Report 9392447 (Version 3)
Quarter: 2013Q4

REPORT INFORMATION
  Report Type: Spontaneous
  Country: JP (occurrence: JP)
  Receive Date: 20130710
  Receipt Date: 20131128
  Transmission Date: 20140711
  Serious: Yes (Hospitalization)
  Sender: FDA-Public Use
  Company Number: JP-AMGEN-JPNSP2013047961

PATIENT
  Age: 55 Year
  Sex: Male
  Weight: 51 kg

DRUGS (53)
  1. VECTIBIX [Suspect]
     Indication: RECTAL CANCER RECURRENT
     Dosage: UNK UNK, Q2WK
     Route: 041
     Dates: start: 20121106, end: 20121106
  2. VECTIBIX [Suspect]
     Dosage: 342 MG, Q2WK
     Route: 041
     Dates: start: 20121127, end: 20130618
  3. VECTIBIX [Suspect]
     Dosage: 198 MG, Q2WK
     Route: 041
     Dates: start: 20130726
  4. VECTIBIX [Suspect]
     Route: 041
     Dates: start: 20121106, end: 20121106
  5. VECTIBIX [Suspect]
     Route: 041
     Dates: start: 20121127, end: 20130618
  6. MINOPEN [Suspect]
     Indication: PROPHYLAXIS
     Dosage: 100 MG, BID
     Route: 048
     Dates: start: 20121107, end: 20130626
  7. TOPOTECIN [Concomitant]
     Indication: RECTAL CANCER RECURRENT
     Route: 041
     Dates: start: 20121106, end: 20130618
  8. TOPOTECIN [Concomitant]
     Dosage: 100 MG, Q2WK
     Route: 041
     Dates: start: 20130726
  9. TOPOTECIN [Concomitant]
     Route: 041
     Dates: start: 20130726
  10. LEVOFOLINATE CALCIUM [Concomitant]
     Indication: RECTAL CANCER RECURRENT
     Dosage: UNK UNK, Q2WK
     Route: 041
     Dates: start: 20121106, end: 20130618
  11. LEVOFOLINATE CALCIUM [Concomitant]
     Dosage: 300 MG, Q2WK
     Route: 041
     Dates: start: 20130726
  12. LEVOFOLINATE CALCIUM [Concomitant]
     Route: 041
     Dates: start: 20130726
  13. 5-FU                               /00098801/ [Concomitant]
     Indication: RECTAL CANCER RECURRENT
     Dosage: UNK UNK, Q2WK
     Route: 042
     Dates: start: 20121106, end: 20130618
  14. 5-FU                               /00098801/ [Concomitant]
     Dosage: 400 MG, Q2WK
     Route: 040
     Dates: start: 20130726
  15. 5-FU                               /00098801/ [Concomitant]
     Dosage: 2450 MG, Q2WK
     Route: 041
     Dates: start: 20130726
  16. EMEND                              /01627301/ [Concomitant]
     Indication: PROPHYLAXIS OF NAUSEA AND VOMITING
     Dosage: 125 MG, Q2WK
     Route: 048
     Dates: start: 20130726, end: 20130726
  17. EMEND                              /01627301/ [Concomitant]
     Dosage: 80 MG, UNK
     Route: 048
     Dates: start: 20130727
  18. DECADRON                           /00016001/ [Concomitant]
     Indication: PROPHYLAXIS OF NAUSEA AND VOMITING
     Dosage: 3.3 MG, Q2WK
     Route: 042
     Dates: start: 20130726
  19. SEROTONE [Concomitant]
     Indication: PROPHYLAXIS OF NAUSEA AND VOMITING
     Dosage: 12 MG, UNK
     Route: 048
     Dates: start: 20130728
  20. ALOXI [Concomitant]
     Indication: PROPHYLAXIS OF NAUSEA AND VOMITING
     Dosage: 0.75 MG, Q2WK
     Route: 041
     Dates: start: 20130726
  21. RYTHMODAN                          /00271801/ [Concomitant]
     Dosage: 100 MG, TID
     Route: 048
  22. PROMAC                             /01312301/ [Concomitant]
     Dosage: 75 MG, BID
     Route: 048
  23. METHYCOBAL [Concomitant]
     Indication: HYPOAESTHESIA
     Dosage: 500 MUG, TID
     Route: 048
  24. METHYCOBAL [Concomitant]
     Route: 048
     Dates: start: 20110420
  25. SENNOSIDE                          /00571901/ [Concomitant]
     Dosage: 12 MG, QD
     Route: 048
  26. MAINTATE [Concomitant]
     Indication: VENTRICULAR EXTRASYSTOLES
     Dosage: 5 MG, QD
     Route: 048
  27. MAINTATE [Concomitant]
     Route: 048
     Dates: start: 20130410
  28. LANIRAPID [Concomitant]
     Indication: SUPRAVENTRICULAR TACHYCARDIA
     Dosage: 0.1 MG, QD
     Route: 048
  29. LANIRAPID [Concomitant]
     Dosage: 1.5 MG, QD
     Route: 048
  30. LANIRAPID [Concomitant]
     Route: 048
     Dates: start: 20130409
  31. DEPAS [Concomitant]
     Indication: NEUROSIS
     Dosage: 0.5 MG, TID
     Route: 048
  32. DEPAS [Concomitant]
     Route: 048
     Dates: start: 20130626
  33. CYTOTEC [Concomitant]
     Indication: PROPHYLAXIS AGAINST GASTROINTESTINAL ULCER
     Dosage: 200 MUG, TID
     Route: 048
  34. CYTOTEC [Concomitant]
     Route: 048
     Dates: start: 20130627
  35. 5-FU [Concomitant]
     Indication: RECTAL CANCER RECURRENT
     Route: 040
     Dates: start: 20121106, end: 20130618
  36. 5-FU [Concomitant]
     Route: 041
     Dates: start: 20121106, end: 20130618
  37. 5-FU [Concomitant]
     Route: 040
     Dates: start: 20130726
  38. 5-FU [Concomitant]
     Route: 041
     Dates: start: 20130726
  39. EMEND [Concomitant]
     Indication: PROPHYLAXIS OF NAUSEA AND VOMITING
     Route: 048
     Dates: start: 20130726, end: 20130726
  40. EMEND [Concomitant]
     Route: 048
     Dates: start: 20130727
  41. DECADRON                           /00016001/ [Concomitant]
     Indication: PROPHYLAXIS OF NAUSEA AND VOMITING
     Dosage: 3.3 MG, Q2WK
     Route: 048
     Dates: start: 20130727
  42. RYTHMODAN [Concomitant]
     Indication: SUPRAVENTRICULAR TACHYCARDIA
     Route: 048
     Dates: start: 20130402
  43. PROMAC D [Concomitant]
     Indication: DYSGEUSIA
     Route: 048
     Dates: start: 20121027
  44. TSUMURA DAIKENTYUTO [Concomitant]
     Indication: CONSTIPATION
     Route: 048
     Dates: start: 20101104
  45. TSUMURA GOSHAJINKIGAN [Concomitant]
     Indication: HYPOAESTHESIA
     Route: 048
     Dates: start: 20110420
  46. SENNOSIDE [Concomitant]
     Indication: CONSTIPATION
     Route: 048
     Dates: start: 20111105
  47. MYSER OINTMENT [Concomitant]
     Indication: PROPHYLAXIS
     Route: 062
     Dates: start: 20130305
  48. PROPETO [Concomitant]
     Indication: PROPHYLAXIS
     Route: 062
     Dates: start: 20130205
  49. HIRUDOID LOTION [Concomitant]
     Indication: PROPHYLAXIS
     Route: 062
     Dates: start: 20121110
  50. LOCOID CREAM [Concomitant]
     Indication: PROPHYLAXIS
     Route: 062
     Dates: start: 20121106
  51. NERISONA UNIVERSAL CREAM [Concomitant]
     Indication: PROPHYLAXIS
     Route: 062
     Dates: start: 20121211
  52. XYLOCAINE VISCOUS [Concomitant]
     Indication: STOMATITIS
     Route: 065
     Dates: start: 20130305
  53. CRAVIT [Concomitant]
     Indication: EYE DISCHARGE
     Route: 047
     Dates: start: 20130702

REACTIONS (4)
  - Malaise [Recovered/Resolved]
  - Liver function test abnormal [Recovering/Resolving]
  - Dermatitis acneiform [Recovering/Resolving]
  - Supraventricular tachycardia [Recovered/Resolved]
